FAERS Safety Report 21975098 (Version 1)
Quarter: 2023Q1

REPORT INFORMATION
  Report Type: Spontaneous
  Country: GB (occurrence: GB)
  Receive Date: 20230209
  Receipt Date: 20230209
  Transmission Date: 20230418
  Serious: Yes (Other)
  Sender: FDA-Public Use
  Company Number: None

PATIENT
  Sex: Female

DRUGS (1)
  1. ESCITALOPRAM [Suspect]
     Active Substance: ESCITALOPRAM OXALATE
     Indication: Product used for unknown indication
     Dates: start: 20220921

REACTIONS (14)
  - Anxiety [Unknown]
  - Disturbance in attention [Unknown]
  - Depression [Unknown]
  - Dizziness [Unknown]
  - Pyrexia [Unknown]
  - Headache [Unknown]
  - Irritability [Unknown]
  - Nightmare [Unknown]
  - Hypersomnia [Unknown]
  - Suicidal ideation [Unknown]
  - Thinking abnormal [Unknown]
  - Viral infection [Unknown]
  - Abnormal dreams [Unknown]
  - Product substitution issue [Unknown]
